FAERS Safety Report 8789274 (Version 1)
Quarter: 2012Q4

REPORT INFORMATION
  Report Type: Spontaneous
  Country: US (occurrence: None)
  Receive Date: 20120910
  Receipt Date: 20120910
  Transmission Date: 20130627
  Serious: Yes (Life-Threatening, Hospitalization, Other)
  Sender: FDA-Public Use
  Company Number: None

PATIENT
  Age: 20 Year
  Sex: Male
  Weight: 86.18 kg

DRUGS (2)
  1. ROBITUSSIN DM [Suspect]
     Indication: RECREATIONAL SUBSTANCE USE
     Route: 048
     Dates: start: 20010101, end: 20120815
  2. CORICIDIN COUGH + CHEST MAXIMUM [Suspect]
     Route: 048
     Dates: start: 20010101, end: 20120815

REACTIONS (1)
  - Drug dependence [None]
